FAERS Safety Report 16620144 (Version 1)
Quarter: 2019Q3

REPORT INFORMATION
  Report Type: Report from Study
  Country: US (occurrence: US)
  Receive Date: 20190723
  Receipt Date: 20190723
  Transmission Date: 20191004
  Serious: Yes (Hospitalization)
  Sender: FDA-Public Use
  Company Number: US-ACTELION-A-US2018-178685

PATIENT
  Sex: Female
  Weight: 58.05 kg

DRUGS (7)
  1. SILDENAFIL CITRATE. [Concomitant]
     Active Substance: SILDENAFIL CITRATE
  2. VELETRI [Suspect]
     Active Substance: EPOPROSTENOL
     Dosage: 20 NG/KG, PER MIN
     Route: 042
  3. OPSUMIT [Concomitant]
     Active Substance: MACITENTAN
  4. COUMADIN [Concomitant]
     Active Substance: WARFARIN SODIUM
  5. VELETRI [Suspect]
     Active Substance: EPOPROSTENOL
     Indication: PULMONARY ARTERIAL HYPERTENSION
     Dosage: 34 NG/KG, PER MIN
     Route: 042
  6. REVATIO [Concomitant]
     Active Substance: SILDENAFIL CITRATE
  7. XARELTO [Concomitant]
     Active Substance: RIVAROXABAN

REACTIONS (10)
  - Vascular device infection [Unknown]
  - Nausea [Unknown]
  - Decreased appetite [Unknown]
  - Skin erosion [Unknown]
  - Catheter site pruritus [Unknown]
  - Diarrhoea [Unknown]
  - Abdominal distension [Unknown]
  - Catheter site erythema [Unknown]
  - Catheter management [Unknown]
  - Catheter site irritation [Unknown]
